FAERS Safety Report 23247177 (Version 1)
Quarter: 2023Q4

REPORT INFORMATION
  Report Type: Spontaneous
  Country: IT (occurrence: IT)
  Receive Date: 20231130
  Receipt Date: 20231130
  Transmission Date: 20240110
  Serious: Yes (Life-Threatening, Other)
  Sender: FDA-Public Use
  Company Number: None

PATIENT
  Age: 49 Year
  Sex: Female

DRUGS (5)
  1. IBUPROFEN [Suspect]
     Active Substance: IBUPROFEN
     Indication: Osteoarthritis
     Dosage: 400 MILLIGRAM, QD (BRUFEN 30 COATED TABLET 400 MG - 1 TABLET/DAY AS NEEDED ON A FULL STOMACH)
     Route: 048
     Dates: start: 20231106, end: 20231107
  2. IBUPROFEN [Suspect]
     Active Substance: IBUPROFEN
     Indication: Pain
  3. IPAMIX [Concomitant]
     Indication: Hypertensive heart disease
     Dosage: 1 DOSAGE FORM, QD (IPAMIX 50 COATED TABLET 2.5MG - 1 TABLET/DAY IN THE MORNING)
     Route: 048
     Dates: start: 2023
  4. EBASTINE [Concomitant]
     Active Substance: EBASTINE
     Indication: Seasonal allergy
     Dosage: 10 MILLIGRAM, PRN (KESTINE ORAL ADMINISTRATION 30 DOSES FREEZE-DRIED 10 MG - AS NEEDED)
     Route: 048
     Dates: start: 2023
  5. Ezateros [Concomitant]
     Indication: Dyslipidaemia
     Dosage: 1 DOSAGE FORM, QD (EZATEROS 28 TAB 5 MG+10 MG - 1 TABLET/DAY IN THE EVENING)
     Route: 048
     Dates: start: 2023

REACTIONS (4)
  - Anaphylactic shock [Not Recovered/Not Resolved]
  - Pharyngeal oedema [Not Recovered/Not Resolved]
  - Bronchospasm [Not Recovered/Not Resolved]
  - Localised oedema [Not Recovered/Not Resolved]

NARRATIVE: CASE EVENT DATE: 20231107
